FAERS Safety Report 24104904 (Version 2)
Quarter: 2024Q3

REPORT INFORMATION
  Report Type: Report from Study
  Country: US (occurrence: US)
  Receive Date: 20240717
  Receipt Date: 20240723
  Transmission Date: 20241017
  Serious: Yes (Hospitalization, Other)
  Sender: JOHNSON AND JOHNSON
  Company Number: US-JNJFOC-20240620134

PATIENT
  Age: 66 Year
  Sex: Female
  Weight: 82.7 kg

DRUGS (5)
  1. SELEXIPAG [Suspect]
     Active Substance: SELEXIPAG
     Indication: Pulmonary hypertension
     Route: 048
  2. SELEXIPAG [Suspect]
     Active Substance: SELEXIPAG
     Route: 048
  3. OPSUMIT [Concomitant]
     Active Substance: MACITENTAN
  4. XARELTO [Concomitant]
     Active Substance: RIVAROXABAN
  5. DILTIAZEM [Concomitant]
     Active Substance: DILTIAZEM

REACTIONS (12)
  - Pneumonia [Unknown]
  - Cerebrovascular accident [Unknown]
  - Hypertension [Unknown]
  - Fluid retention [Unknown]
  - Headache [Recovering/Resolving]
  - Abdominal pain upper [Unknown]
  - Lung disorder [Unknown]
  - Cough [Unknown]
  - Chest pain [Unknown]
  - Trismus [Unknown]
  - Gastrointestinal disorder [Unknown]
  - Fatigue [Unknown]

NARRATIVE: CASE EVENT DATE: 20240501
